FAERS Safety Report 8482839-9 (Version None)
Quarter: 2012Q2

REPORT INFORMATION
  Report Type: 
  Country: None (occurrence: None)
  Receive Date: 20120615
  Receipt Date: 20120612
  Transmission Date: 20120825
  Serious: Yes (Other)
  Sender: FDA-Public Use
  Company Number: 2012AP001538

PATIENT
  Age: 91 Year
  Sex: Male

DRUGS (2)
  1. HYDROCHLOROTHIAZIDE [Suspect]
     Indication: HYPERTENSION
  2. FUROSEMIDE (FUROSEMIDE) [Suspect]
     Indication: HYPERTENSION

REACTIONS (4)
  - RECTAL HAEMORRHAGE [None]
  - DIEULAFOY'S VASCULAR MALFORMATION [None]
  - HAEMODYNAMIC INSTABILITY [None]
  - GASTROINTESTINAL TRACT MUCOSAL PIGMENTATION [None]
